FAERS Safety Report 15928567 (Version 1)
Quarter: 2019Q1

REPORT INFORMATION
  Report Type: Spontaneous
  Country: CN (occurrence: CN)
  Receive Date: 20190206
  Receipt Date: 20190206
  Transmission Date: 20190417
  Serious: Yes (Other)
  Sender: FDA-Public Use
  Company Number: CN-ASTRAZENECA-2019SE21250

PATIENT
  Age: 18113 Day
  Sex: Male

DRUGS (1)
  1. TICAGRELOR. [Suspect]
     Active Substance: TICAGRELOR
     Indication: PLATELET DISORDER
     Route: 048
     Dates: start: 20181218, end: 20181218

REACTIONS (2)
  - Chest discomfort [Recovering/Resolving]
  - Breath holding [Recovering/Resolving]

NARRATIVE: CASE EVENT DATE: 20181218
